FAERS Safety Report 10253470 (Version 1)
Quarter: 2014Q2

REPORT INFORMATION
  Report Type: Spontaneous
  Country: US (occurrence: US)
  Receive Date: 20140623
  Receipt Date: 20140623
  Transmission Date: 20141212
  Serious: Yes (Hospitalization)
  Sender: FDA-Public Use
  Company Number: US-BAYER-2014-091684

PATIENT
  Age: 23 Year
  Sex: Female
  Weight: 57.6 kg

DRUGS (8)
  1. YAZ [Suspect]
  2. YASMIN [Suspect]
  3. BIOTIN [Concomitant]
  4. FAMOTIDINE [Concomitant]
  5. FERROUS SULFATE [Concomitant]
  6. METHOCARBAMOL [Concomitant]
  7. OXYCOD [Concomitant]
  8. MELOXICAM [Concomitant]

REACTIONS (3)
  - Pelvic venous thrombosis [None]
  - Pulmonary embolism [None]
  - Deep vein thrombosis [None]
